FAERS Safety Report 14355759 (Version 1)
Quarter: 2018Q1

REPORT INFORMATION
  Report Type: Spontaneous
  Country: US (occurrence: US)
  Receive Date: 20180104
  Receipt Date: 20180104
  Transmission Date: 20180509
  Serious: Yes (Disabling)
  Sender: FDA-Public Use
  Company Number: None

PATIENT
  Sex: Male
  Weight: 5.4 kg

DRUGS (4)
  1. PROBIOTICS [Concomitant]
     Active Substance: PROBIOTICS NOS
  2. INFANT DHA [Concomitant]
  3. DERMA-SMOOTHE/FS [Suspect]
     Active Substance: FLUOCINOLONE ACETONIDE
     Indication: ECZEMA
     Route: 061
     Dates: start: 20170601, end: 20170812
  4. TRIAMCINALONE [Suspect]
     Active Substance: TRIAMCINOLONE
     Indication: ECZEMA
     Dates: start: 20170601, end: 20170812

REACTIONS (8)
  - Drug effect decreased [None]
  - Pruritus [None]
  - Erythema [None]
  - Peripheral swelling [None]
  - Pain [None]
  - Ulcer [None]
  - Disease recurrence [None]
  - Alopecia [None]

NARRATIVE: CASE EVENT DATE: 20170601
